FAERS Safety Report 8282056-1 (Version None)
Quarter: 2012Q2

REPORT INFORMATION
  Report Type: 
  Country: None (occurrence: None)
  Receive Date: 20120413
  Receipt Date: 20120410
  Transmission Date: 20120825
  Serious: Yes (Hospitalization, Other)
  Sender: FDA-Public Use
  Company Number: US-TEVA-332756USA

PATIENT
  Sex: Female

DRUGS (1)
  1. PARAGARD T 380A [Suspect]
     Indication: CONTRACEPTION
     Route: 015
     Dates: start: 20091204

REACTIONS (6)
  - PREGNANCY WITH CONTRACEPTIVE DEVICE [None]
  - DRUG INEFFECTIVE [None]
  - LIVE BIRTH [None]
  - BLADDER INJURY [None]
  - DEVICE DISLOCATION [None]
  - UTERINE PERFORATION [None]
